FAERS Safety Report 9508319 (Version 1)
Quarter: 2013Q3

REPORT INFORMATION
  Report Type: Spontaneous
  Country: AT (occurrence: AT)
  Receive Date: 20130909
  Receipt Date: 20130909
  Transmission Date: 20140515
  Serious: Yes (Hospitalization)
  Sender: FDA-Public Use
  Company Number: AT-INCYTE CORPORATION-2013IN002006

PATIENT
  Sex: Male

DRUGS (2)
  1. JAKAVI [Suspect]
     Indication: POLYCYTHAEMIA VERA
     Dosage: 2 X 5 MG FOR ONE WEEK
     Route: 065
  2. LITALIR [Suspect]
     Indication: POLYCYTHAEMIA VERA
     Dosage: UNK,UNK,UNK
     Route: 065

REACTIONS (2)
  - Pancytopenia [Recovering/Resolving]
  - Drug administration error [None]
